FAERS Safety Report 9797517 (Version 3)
Quarter: 2014Q2

REPORT INFORMATION
  Report Type: Spontaneous
  Country: US (occurrence: None)
  Receive Date: 20131231
  Receipt Date: 20140527
  Transmission Date: 20141212
  Serious: Yes (Other)
  Sender: FDA-Public Use
  Company Number: 2013US002755

PATIENT
  Age: 55 Year
  Sex: Female

DRUGS (3)
  1. ICLUSIG [Suspect]
     Indication: CHRONIC MYELOID LEUKAEMIA
     Route: 048
     Dates: start: 20130925, end: 201310
  2. DIOVAN (VALSARTAN) [Concomitant]
  3. DOXYCYCLINE (DOXYCYCLINE) [Concomitant]

REACTIONS (5)
  - Post procedural infection [None]
  - Erythema [None]
  - Hypertension [None]
  - Dry skin [None]
  - Skin disorder [None]
